FAERS Safety Report 14195266 (Version 1)
Quarter: 2017Q4

REPORT INFORMATION
  Report Type: Spontaneous
  Country: CN (occurrence: CN)
  Receive Date: 20171116
  Receipt Date: 20171116
  Transmission Date: 20180321
  Serious: Yes (Life-Threatening, Hospitalization)
  Sender: FDA-Public Use
  Company Number: CN-SA-2017SA224026

PATIENT
  Age: 19 Year
  Sex: Male

DRUGS (2)
  1. PRIMAQUINE PHOSPHATE. [Suspect]
     Active Substance: PRIMAQUINE PHOSPHATE
     Indication: PLASMODIUM VIVAX INFECTION
     Route: 065
  2. CHLOROQUINE. [Concomitant]
     Active Substance: CHLOROQUINE
     Indication: PLASMODIUM VIVAX INFECTION
     Route: 065

REACTIONS (19)
  - Heart rate increased [Recovered/Resolved]
  - Haemoglobin decreased [Recovered/Resolved]
  - Haemolysis [Recovered/Resolved]
  - Chromaturia [Recovered/Resolved]
  - Respiratory rate increased [Recovered/Resolved]
  - Blood bilirubin increased [Recovered/Resolved]
  - Conjunctival pallor [Recovered/Resolved]
  - Red blood cell count decreased [Recovered/Resolved]
  - Jaundice [Recovered/Resolved]
  - Blood bilirubin unconjugated increased [Recovered/Resolved]
  - Hypotension [Recovered/Resolved]
  - Haemolytic anaemia [Recovered/Resolved]
  - Pallor [Recovered/Resolved]
  - Spleen palpable [Recovered/Resolved]
  - Haematocrit decreased [Recovered/Resolved]
  - Bilirubin urine present [Recovered/Resolved]
  - Haemoglobin urine present [Recovered/Resolved]
  - Blood urea increased [Recovered/Resolved]
  - Syncope [Recovered/Resolved]
